FAERS Safety Report 13298816 (Version 1)
Quarter: 2017Q1

REPORT INFORMATION
  Report Type: Spontaneous
  Country: AU (occurrence: AU)
  Receive Date: 20170306
  Receipt Date: 20170306
  Transmission Date: 20170428
  Serious: Yes (Other)
  Sender: FDA-Public Use
  Company Number: AU-SA-2017SA034507

PATIENT
  Sex: Female

DRUGS (6)
  1. IRBESARTAN. [Suspect]
     Active Substance: IRBESARTAN
     Route: 065
  2. COLECALCIFEROL [Suspect]
     Active Substance: CHOLECALCIFEROL
     Route: 065
  3. PARACETAMOL [Suspect]
     Active Substance: ACETAMINOPHEN
     Route: 065
  4. GILENYA [Suspect]
     Active Substance: FINGOLIMOD HYDROCHLORIDE
     Route: 065
  5. PREGABALIN. [Suspect]
     Active Substance: PREGABALIN
     Route: 065
  6. DICLOFENAC [Suspect]
     Active Substance: DICLOFENAC
     Route: 065

REACTIONS (2)
  - Bradycardia [Unknown]
  - Sinus rhythm [Unknown]
